FAERS Safety Report 6896198-6 (Version None)
Quarter: 2010Q3

REPORT INFORMATION
  Report Type: 
  Country: None (occurrence: None)
  Receive Date: 20100802
  Receipt Date: 20100726
  Transmission Date: 20110219
  Serious: Yes (Other)
  Sender: FDA-Public Use
  Company Number: A0872350A

PATIENT
  Age: 72 Year
  Sex: Female

DRUGS (19)
  1. FLOVENT [Suspect]
     Indication: ASTHMA
     Dosage: 2PUFF PER DAY
     Route: 055
     Dates: start: 20070701
  2. GLIMEPIRIDE [Concomitant]
  3. METFORMIN HCL [Concomitant]
  4. CYTOMEL [Concomitant]
  5. SYNTHROID [Concomitant]
  6. DIOVAN [Concomitant]
  7. HYDROCHLOROTHIAZIDE [Concomitant]
  8. NORVASC [Concomitant]
  9. LIPITOR [Concomitant]
  10. SINGULAIR [Concomitant]
  11. PRILOSEC [Concomitant]
  12. REMICADE [Concomitant]
  13. CALCIUM [Concomitant]
  14. VITAMIN D [Concomitant]
  15. MULTI-VITAMIN [Concomitant]
  16. BIOTIN [Concomitant]
  17. GRAPE SEED EXTRACT [Concomitant]
  18. FISH OIL [Concomitant]
  19. BENADRYL [Concomitant]

REACTIONS (4)
  - ASTHMA [None]
  - COUGH [None]
  - PRODUCT QUALITY ISSUE [None]
  - THROAT IRRITATION [None]
